FAERS Safety Report 14550944 (Version 1)
Quarter: 2018Q1

REPORT INFORMATION
  Report Type: Spontaneous
  Country: US (occurrence: US)
  Receive Date: 20180220
  Receipt Date: 20180220
  Transmission Date: 20180509
  Serious: No
  Sender: FDA-Public Use
  Company Number: US-TEVA-781434USA

PATIENT
  Sex: Female

DRUGS (1)
  1. AMPHETAMINE W/DEXTROAMPHETAMINE [Suspect]
     Active Substance: AMPHETAMINE SULFATE\DEXTROAMPHETAMINE

REACTIONS (11)
  - Drug ineffective [Unknown]
  - Abdominal discomfort [Unknown]
  - Constipation [Unknown]
  - Eructation [Unknown]
  - Dry mouth [Unknown]
  - Muscle tightness [Unknown]
  - Muscle twitching [Unknown]
  - Disturbance in attention [Unknown]
  - Swelling [Unknown]
  - Memory impairment [Unknown]
  - Musculoskeletal stiffness [Unknown]
